FAERS Safety Report 23091302 (Version 2)
Quarter: 2023Q4

REPORT INFORMATION
  Report Type: Report from Study
  Country: TW (occurrence: TW)
  Receive Date: 20231020
  Receipt Date: 20231027
  Transmission Date: 20240109
  Serious: Yes (Death, Life-Threatening)
  Sender: FDA-Public Use
  Company Number: TW-TAIHOP-2023-008935

PATIENT
  Age: 60 Year
  Sex: Male
  Weight: 51 kg

DRUGS (8)
  1. TIPIRACIL HYDROCHLORIDE\TRIFLURIDINE [Suspect]
     Active Substance: TIPIRACIL HYDROCHLORIDE\TRIFLURIDINE
     Indication: Adenocarcinoma of colon
     Dosage: CYCLE 1 DAY 1
     Route: 048
     Dates: start: 20230720
  2. TIPIRACIL HYDROCHLORIDE\TRIFLURIDINE [Suspect]
     Active Substance: TIPIRACIL HYDROCHLORIDE\TRIFLURIDINE
     Dosage: CYCLE 2 DAY 1
     Route: 048
     Dates: start: 20230810
  3. TIPIRACIL HYDROCHLORIDE\TRIFLURIDINE [Suspect]
     Active Substance: TIPIRACIL HYDROCHLORIDE\TRIFLURIDINE
     Dosage: CYCLE 3 DAY 1
     Route: 048
     Dates: start: 20230831
  4. TIPIRACIL HYDROCHLORIDE\TRIFLURIDINE [Suspect]
     Active Substance: TIPIRACIL HYDROCHLORIDE\TRIFLURIDINE
     Dosage: CYCLE 4 DAY 1
     Route: 048
     Dates: start: 20230928
  5. IRINOTECAN [Suspect]
     Active Substance: IRINOTECAN
     Indication: Adenocarcinoma of colon
     Dosage: CYCLE 1 DAY 1
     Route: 042
     Dates: start: 20230720
  6. IRINOTECAN [Suspect]
     Active Substance: IRINOTECAN
     Dosage: CYCLE 2 DAY 1
     Route: 042
     Dates: start: 20230810
  7. IRINOTECAN [Suspect]
     Active Substance: IRINOTECAN
     Dosage: CYCLE 3 DAY 1
     Route: 042
     Dates: start: 20230831
  8. IRINOTECAN [Suspect]
     Active Substance: IRINOTECAN
     Dosage: CYCLE 4 DAY 1
     Route: 042
     Dates: start: 20230928, end: 20230928

REACTIONS (3)
  - Pneumonia [Fatal]
  - Septic shock [Fatal]
  - Neutropenia [Fatal]

NARRATIVE: CASE EVENT DATE: 20231007
